FAERS Safety Report 9416349 (Version 1)
Quarter: 2013Q3

REPORT INFORMATION
  Report Type: Spontaneous
  Country: GB (occurrence: GB)
  Receive Date: 20130724
  Receipt Date: 20130724
  Transmission Date: 20140515
  Serious: Yes (Hospitalization)
  Sender: FDA-Public Use
  Company Number: GB-ELI_LILLY_AND_COMPANY-GB201307004129

PATIENT
  Sex: Male

DRUGS (1)
  1. ZYPADHERA [Suspect]
     Dosage: 300 MG, 2/M
     Dates: start: 20130412

REACTIONS (1)
  - Injection site abscess [Recovering/Resolving]
